FAERS Safety Report 6107332-X (Version None)
Quarter: 2009Q1

REPORT INFORMATION
  Report Type: 
  Country: None (occurrence: None)
  Receive Date: 20090309
  Receipt Date: 20090225
  Transmission Date: 20090719
  Serious: Yes (Hospitalization, Other)
  Sender: FDA-Public Use
  Company Number: KR-ASTRAZENECA-2009AP01640

PATIENT
  Age: 22353 Day
  Sex: Female

DRUGS (10)
  1. IRESSA [Suspect]
     Indication: NON-SMALL CELL LUNG CANCER
     Route: 048
     Dates: start: 20080122, end: 20080819
  2. IRESSA [Suspect]
     Indication: ADENOCARCINOMA
     Route: 048
     Dates: start: 20080122, end: 20080819
  3. IRESSA [Suspect]
     Route: 048
     Dates: start: 20080910
  4. IRESSA [Suspect]
     Route: 048
     Dates: start: 20080910
  5. SURFOLASE [Concomitant]
     Indication: PRODUCTIVE COUGH
     Route: 048
     Dates: start: 20070126
  6. MOTILIUM-M [Concomitant]
     Indication: CONSTIPATION PROPHYLAXIS
     Route: 048
     Dates: start: 20071112
  7. CODEINE SUL TAB [Concomitant]
     Indication: PROPHYLAXIS
     Route: 048
  8. ZYRTEC [Concomitant]
     Indication: PRURITUS
     Route: 048
     Dates: start: 20080215, end: 20080819
  9. UCERAX [Concomitant]
     Indication: PRURITUS
     Route: 048
     Dates: start: 20080708
  10. LECTOPAM TAB [Concomitant]
     Indication: ANXIETY
     Route: 048
     Dates: start: 20080708

REACTIONS (1)
  - DEEP VEIN THROMBOSIS [None]
